FAERS Safety Report 24016509 (Version 1)
Quarter: 2024Q2

REPORT INFORMATION
  Report Type: Report from Study
  Country: US (occurrence: US)
  Receive Date: 20240626
  Receipt Date: 20240626
  Transmission Date: 20240716
  Serious: Yes (Other)
  Sender: FDA-Public Use
  Company Number: US-ABBVIE-5815551

PATIENT
  Sex: Female

DRUGS (2)
  1. IMBRUVICA [Suspect]
     Active Substance: IBRUTINIB
     Indication: Chronic lymphocytic leukaemia
     Route: 048
     Dates: start: 202210
  2. LITHIUM [Concomitant]
     Active Substance: LITHIUM
     Indication: Product used for unknown indication

REACTIONS (8)
  - Gait inability [Unknown]
  - Dehydration [Unknown]
  - Dysuria [Unknown]
  - Asthenia [Unknown]
  - Dry eye [Unknown]
  - Diplopia [Unknown]
  - Weight decreased [Unknown]
  - Fluid intake reduced [Unknown]
